FAERS Safety Report 6687579-4 (Version None)
Quarter: 2010Q2

REPORT INFORMATION
  Report Type: 
  Country: None (occurrence: None)
  Receive Date: 20100419
  Receipt Date: 20100409
  Transmission Date: 20101027
  Serious: Yes (Other)
  Sender: FDA-Public Use
  Company Number: PT-AMGEN-KDL399468

PATIENT
  Sex: Male

DRUGS (5)
  1. NPLATE [Suspect]
     Indication: IDIOPATHIC THROMBOCYTOPENIC PURPURA
     Route: 058
     Dates: start: 20100215, end: 20100330
  2. IMMU-G [Concomitant]
  3. DONNATAL [Concomitant]
  4. ACENOCOUMAROL [Concomitant]
  5. DANAZOL [Concomitant]

REACTIONS (3)
  - PRURITUS [None]
  - SKIN LESION [None]
  - SKIN REACTION [None]
